FAERS Safety Report 6253780-7 (Version None)
Quarter: 2009Q3

REPORT INFORMATION
  Report Type: 
  Country: None (occurrence: None)
  Receive Date: 20090701
  Receipt Date: 20090624
  Transmission Date: 20100115
  Serious: Yes (Other)
  Sender: FDA-Public Use
  Company Number: US-JNJCH-2009017460

PATIENT
  Age: 75 Year
  Sex: Female
  Weight: 54 kg

DRUGS (1)
  1. ROGAINE [Suspect]
     Indication: ALOPECIA
     Dosage: TEXT:AS DIRECTED TWO TIMES
     Route: 061

REACTIONS (2)
  - APPLICATION SITE BURN [None]
  - APPLICATION SITE VESICLES [None]
